FAERS Safety Report 6671742-2 (Version None)
Quarter: 2010Q2

REPORT INFORMATION
  Report Type: 
  Country: None (occurrence: None)
  Receive Date: 20100406
  Receipt Date: 20100406
  Transmission Date: 20101027
  Serious: No
  Sender: FDA-Public Use
  Company Number: None

PATIENT

DRUGS (1)
  1. PREMPRO [Suspect]

REACTIONS (2)
  - MENOPAUSAL SYMPTOMS [None]
  - PRODUCT QUALITY ISSUE [None]
